FAERS Safety Report 4878174-8 (Version None)
Quarter: 2005Q4

REPORT INFORMATION
  Report Type: 
  Country: None (occurrence: None)
  Receive Date: 20051209
  Receipt Date: 20050527
  Transmission Date: 20060501
  Serious: Yes (Hospitalization, Other)
  Sender: FDA-Public Use
  Company Number: USA-2003-0012150

PATIENT
  Age: 45 Year
  Sex: Male
  Weight: 147.8 kg

DRUGS (23)
  1. OXYCONTIN [Suspect]
     Indication: PAIN
     Dosage: 20 MG , TID
     Dates: start: 20000401
  2. NEURONTIN [Concomitant]
  3. PROCARDIA XL [Concomitant]
  4. HYDROCHLORZIDE [Concomitant]
  5. PRILOSEC [Concomitant]
  6. METHOCARBAMOL [Concomitant]
  7. IMIPRAMINE [Concomitant]
  8. AMARYL [Concomitant]
  9. TOPROL-XL [Concomitant]
  10. TRIAMTERENE [Concomitant]
  11. OMEPRAZOLE [Concomitant]
  12. SOMA [Concomitant]
  13. AMITRIPTYLINE HCL [Concomitant]
  14. CELEBREX [Concomitant]
  15. LISINOPRIL [Concomitant]
  16. STOOL SOFTNER [Concomitant]
  17. ASPIRIN [Concomitant]
  18. DOXEPIN [Concomitant]
  19. BUMEX [Concomitant]
  20. BACLOFEN [Concomitant]
  21. PERCOCET [Concomitant]
  22. GLUCOPHAGE [Concomitant]
  23. HYDROCHLOROTHIAZIDE [Concomitant]

REACTIONS (48)
  - ABDOMINAL PAIN [None]
  - ANXIETY [None]
  - ARTHRALGIA [None]
  - ARTHRITIS [None]
  - ASTHENIA [None]
  - BACK PAIN [None]
  - BURNING SENSATION [None]
  - CATARACT [None]
  - CHEST PAIN [None]
  - CONSTIPATION [None]
  - CREPITATIONS [None]
  - DECREASED APPETITE [None]
  - DEPRESSION [None]
  - DIABETIC RETINOPATHY [None]
  - DIARRHOEA [None]
  - DIZZINESS [None]
  - DRUG DEPENDENCE [None]
  - DRUG WITHDRAWAL SYNDROME [None]
  - DYSPEPSIA [None]
  - DYSPNOEA [None]
  - FATIGUE [None]
  - FEELING ABNORMAL [None]
  - HEADACHE [None]
  - HEART RATE INCREASED [None]
  - HYPERHIDROSIS [None]
  - HYPERMETROPIA [None]
  - HYPOAESTHESIA [None]
  - INSOMNIA [None]
  - IRRITABILITY [None]
  - MENISCUS LESION [None]
  - MUSCLE SPASMS [None]
  - MUSCULOSKELETAL PAIN [None]
  - MYALGIA [None]
  - NOCTURIA [None]
  - OEDEMA PERIPHERAL [None]
  - PAIN [None]
  - PAIN IN EXTREMITY [None]
  - PAIN IN JAW [None]
  - PALPITATIONS [None]
  - PARAESTHESIA [None]
  - POLYDIPSIA [None]
  - POLYURIA [None]
  - POSTURE ABNORMAL [None]
  - PRESBYOPIA [None]
  - PYREXIA [None]
  - TOOTHACHE [None]
  - VITREOUS FLOATERS [None]
  - WEIGHT INCREASED [None]
